FAERS Safety Report 18144807 (Version 1)
Quarter: 2020Q3

REPORT INFORMATION
  Report Type: Spontaneous
  Country: EC (occurrence: EC)
  Receive Date: 20200813
  Receipt Date: 20200813
  Transmission Date: 20201103
  Serious: No
  Sender: FDA-Public Use
  Company Number: None

PATIENT
  Age: 47 Year
  Sex: Male
  Weight: 64 kg

DRUGS (1)
  1. AZATIOPRINA [Suspect]
     Active Substance: AZATHIOPRINE

REACTIONS (3)
  - Pleural effusion [None]
  - Myositis [None]
  - Renal pain [None]

NARRATIVE: CASE EVENT DATE: 20200729
